FAERS Safety Report 6916762-5 (Version None)
Quarter: 2010Q3

REPORT INFORMATION
  Report Type: 
  Country: None (occurrence: None)
  Receive Date: 20100810
  Receipt Date: 20100729
  Transmission Date: 20110219
  Serious: Yes (Life-Threatening, Other)
  Sender: FDA-Public Use
  Company Number: FR-PFIZER INC-2010096846

PATIENT
  Age: 15 Year
  Sex: Male

DRUGS (3)
  1. ATARAX [Suspect]
     Dosage: 4.5 G, SINGLE INTAKE
     Route: 048
     Dates: start: 20100313, end: 20100313
  2. DEPAKOTE [Suspect]
     Dosage: 4 G, 25 MG, SINGLE INTAKE
     Route: 048
     Dates: start: 20100313, end: 20100313
  3. PARACETAMOL [Suspect]
     Dosage: 8 G, SINGLE INTAKE
     Route: 048
     Dates: start: 20100313, end: 20100313

REACTIONS (5)
  - COMA [None]
  - CONVULSION [None]
  - DRUG TOXICITY [None]
  - ELECTROCARDIOGRAM QT PROLONGED [None]
  - OVERDOSE [None]
